FAERS Safety Report 17405728 (Version 1)
Quarter: 2020Q1

REPORT INFORMATION
  Report Type: Spontaneous
  Country: US (occurrence: US)
  Receive Date: 20200127
  Receipt Date: 20200127
  Transmission Date: 20200409
  Serious: Yes (Other)
  Sender: FDA-Public Use
  Company Number: None

PATIENT
  Age: 62 Year
  Sex: Male
  Weight: 81.65 kg

DRUGS (2)
  1. ALLERGY SHOTS [Concomitant]
     Active Substance: UNSPECIFIED INGREDIENT
  2. SUPREP BOWEL PREP [Suspect]
     Active Substance: MAGNESIUM SULFATE\POTASSIUM SULFATE\SODIUM SULFATE
     Indication: COLONOSCOPY
     Dosage: ?          OTHER STRENGTH:MIX 6 OZ. W/10 OZ ;QUANTITY:1 DOSE EACH DAY FO;OTHER FREQUENCY:1 DOSE PER DAY FOR;?
     Route: 048
     Dates: start: 20200113, end: 20200114

REACTIONS (4)
  - Constipation [None]
  - Decreased appetite [None]
  - Gastrointestinal pain [None]
  - Abdominal pain upper [None]

NARRATIVE: CASE EVENT DATE: 20200115
